FAERS Safety Report 8044496-5 (Version None)
Quarter: 2012Q1

REPORT INFORMATION
  Report Type: 
  Country: None (occurrence: None)
  Receive Date: 20120113
  Receipt Date: 20120110
  Transmission Date: 20120608
  Serious: No
  Sender: FDA-Public Use
  Company Number: US-TEVA-317063USA

PATIENT
  Sex: Female
  Weight: 76.272 kg

DRUGS (2)
  1. PLAN B ONE-STEP [Suspect]
     Indication: POST COITAL CONTRACEPTION
     Dosage: 1.5 MILLIGRAM;
     Route: 048
     Dates: start: 20120106, end: 20120106
  2. MULTI-VITAMINS [Concomitant]
     Indication: MEDICAL DIET

REACTIONS (3)
  - ABDOMINAL PAIN [None]
  - BREAST TENDERNESS [None]
  - MENSTRUATION IRREGULAR [None]
